FAERS Safety Report 7799562-6 (Version None)
Quarter: 2011Q4

REPORT INFORMATION
  Report Type: 
  Country: None (occurrence: None)
  Receive Date: 20111006
  Receipt Date: 20111003
  Transmission Date: 20120403
  Serious: No
  Sender: FDA-Public Use
  Company Number: US-TEVA-303737USA

PATIENT
  Sex: Female
  Weight: 60.382 kg

DRUGS (1)
  1. PLAN B ONE-STEP [Suspect]
     Indication: POST COITAL CONTRACEPTION
     Dosage: 1.5 MILLIGRAM;
     Route: 048
     Dates: start: 20110901, end: 20110901

REACTIONS (4)
  - NAUSEA [None]
  - HEADACHE [None]
  - PELVIC PAIN [None]
  - MENSTRUATION IRREGULAR [None]
